FAERS Safety Report 25913509 (Version 4)
Quarter: 2025Q4

REPORT INFORMATION
  Report Type: Spontaneous
  Country: UY (occurrence: UY)
  Receive Date: 20251013
  Receipt Date: 20251201
  Transmission Date: 20260118
  Serious: No
  Sender: PFIZER
  Company Number: UY-PFIZER INC-202500199518

PATIENT
  Age: 11 Year
  Sex: Female

DRUGS (1)
  1. GENOTROPIN [Suspect]
     Active Substance: SOMATROPIN
     Dosage: UNK

REACTIONS (1)
  - Device mechanical issue [Unknown]
